FAERS Safety Report 8413590-9 (Version None)
Quarter: 2012Q2

REPORT INFORMATION
  Report Type: 
  Country: None (occurrence: None)
  Receive Date: 20120605
  Receipt Date: 20120523
  Transmission Date: 20120825
  Serious: Yes (Other)
  Sender: FDA-Public Use
  Company Number: JP-ROCHE-1033050

PATIENT
  Sex: Male
  Weight: 48 kg

DRUGS (18)
  1. PURSENNID [Concomitant]
     Indication: CONSTIPATION
     Route: 048
     Dates: start: 20050920
  2. NORVASC [Concomitant]
     Indication: HYPERTENSION
     Route: 048
     Dates: start: 20060404
  3. MYONAL [Concomitant]
     Indication: BACK PAIN
     Route: 048
     Dates: start: 20060705, end: 20120112
  4. GASMOTIN [Concomitant]
     Indication: GASTRITIS
     Route: 048
     Dates: start: 20071004
  5. GOODMIN [Concomitant]
     Indication: INSOMNIA
     Route: 048
     Dates: start: 20061025
  6. ASPIRIN [Concomitant]
     Indication: THROMBOSIS PROPHYLAXIS
     Route: 048
     Dates: start: 20060404
  7. TAMIFLU [Suspect]
     Route: 048
     Dates: start: 20120113, end: 20120115
  8. TAMIFLU [Suspect]
     Route: 048
     Dates: start: 20120116, end: 20120116
  9. ALLOPURINOL [Concomitant]
     Indication: HYPERURICAEMIA
     Route: 048
     Dates: start: 20050920
  10. ACETAMINOPHEN [Concomitant]
     Indication: PYREXIA
     Route: 054
     Dates: start: 20120111
  11. INAVIR (JAPAN) [Concomitant]
     Route: 055
     Dates: start: 20120111
  12. TAMIFLU [Suspect]
     Indication: INFLUENZA
     Route: 048
     Dates: start: 20120112, end: 20120112
  13. ROHYPNOL [Concomitant]
     Indication: INSOMNIA
     Route: 048
     Dates: start: 20050920, end: 20120116
  14. ROCEPHIN [Concomitant]
     Indication: PNEUMONIA
     Route: 041
     Dates: start: 20120114, end: 20120117
  15. FAMOTIDINE [Concomitant]
     Indication: GASTRIC ULCER
     Route: 048
     Dates: start: 20060705
  16. PROMETHAZINE HCL [Concomitant]
     Indication: PARKINSONISM
     Route: 048
     Dates: start: 20111031
  17. ACETAMINOPHEN [Concomitant]
     Route: 048
     Dates: start: 20120112
  18. MUCOSIL-10 [Concomitant]
     Indication: PRODUCTIVE COUGH
     Route: 048
     Dates: start: 20120112, end: 20120116

REACTIONS (1)
  - RHABDOMYOLYSIS [None]
